FAERS Safety Report 24033681 (Version 8)
Quarter: 2025Q2

REPORT INFORMATION
  Report Type: Report from Study
  Country: US (occurrence: US)
  Receive Date: 20240701
  Receipt Date: 20250619
  Transmission Date: 20250717
  Serious: Yes (Hospitalization)
  Sender: TAKEDA
  Company Number: US-TAKEDA-2024TUS065016

PATIENT
  Age: 67 Year
  Sex: Male
  Weight: 78 kg

DRUGS (15)
  1. HUMAN IMMUNOGLOBULIN G [Suspect]
     Active Substance: HUMAN IMMUNOGLOBULIN G
     Indication: Skin disorder
     Dosage: 1000 MILLIGRAM/KILOGRAM, Q4WEEKS
     Dates: start: 20240612
  2. BENADRYL [Suspect]
     Active Substance: DIPHENHYDRAMINE HYDROCHLORIDE
     Indication: Product used for unknown indication
  3. ACETAMINOPHEN [Concomitant]
     Active Substance: ACETAMINOPHEN
  4. EPINEPHRINE [Concomitant]
     Active Substance: EPINEPHRINE
  5. SODIUM CHLORIDE [Concomitant]
     Active Substance: SODIUM CHLORIDE
  6. LIDOCAINE [Concomitant]
     Active Substance: LIDOCAINE
  7. PREVACID [Concomitant]
     Active Substance: LANSOPRAZOLE
  8. DIPHENHYDRAMINE HYDROCHLORIDE [Concomitant]
     Active Substance: DIPHENHYDRAMINE HYDROCHLORIDE
  9. DARZALEX FASPRO [Concomitant]
     Active Substance: DARATUMUMAB\HYALURONIDASE-FIHJ
  10. DARZALEX [Concomitant]
     Active Substance: DARATUMUMAB
  11. ACYCLOVIR [Concomitant]
     Active Substance: ACYCLOVIR
  12. ELIQUIS [Concomitant]
     Active Substance: APIXABAN
  13. VELCADE [Concomitant]
     Active Substance: BORTEZOMIB
  14. LEVETIRACETAM [Concomitant]
     Active Substance: LEVETIRACETAM
  15. LACOSAMIDE [Concomitant]
     Active Substance: LACOSAMIDE

REACTIONS (11)
  - Lichen myxoedematosus [Unknown]
  - Pyrexia [Unknown]
  - Product use in unapproved indication [Unknown]
  - Nasopharyngitis [Unknown]
  - Bronchitis [Unknown]
  - Hypoaesthesia [Recovered/Resolved]
  - Pain in extremity [Recovered/Resolved]
  - Infusion site pain [Unknown]
  - Paraesthesia [Recovered/Resolved]
  - Fatigue [Unknown]
  - Headache [Unknown]

NARRATIVE: CASE EVENT DATE: 20240612
